FAERS Safety Report 4307786-5 (Version None)
Quarter: 2004Q1

REPORT INFORMATION
  Report Type: 
  Country: None (occurrence: None)
  Receive Date: 20040225
  Receipt Date: 20030624
  Transmission Date: 20041129
  Serious: Yes (Hospitalization)
  Sender: FDA-Public Use
  Company Number: WAES 0306USA02889

PATIENT
  Sex: Male

DRUGS (3)
  1. ZOCOR [Suspect]
     Indication: HYPERCHOLESTEROLAEMIA
     Dosage: 40 MG/DAILY/PO; 80 MG /DAILY/PO
     Route: 048
  2. COUMADIN [Concomitant]
  3. VASOTEC [Concomitant]

REACTIONS (1)
  - MYOPATHY [None]
